FAERS Safety Report 8429442-4 (Version None)
Quarter: 2012Q2

REPORT INFORMATION
  Report Type: 
  Country: None (occurrence: None)
  Receive Date: 20120612
  Receipt Date: 20120530
  Transmission Date: 20120825
  Serious: Yes (Hospitalization, Other)
  Sender: FDA-Public Use
  Company Number: JP-FRI-1000029337

PATIENT
  Sex: Female
  Weight: 77 kg

DRUGS (1)
  1. LEXAPRO [Suspect]
     Indication: DEPRESSION
     Route: 048
     Dates: start: 20120201, end: 20120309

REACTIONS (23)
  - ASPARTATE AMINOTRANSFERASE INCREASED [None]
  - BLOOD URIC ACID INCREASED [None]
  - VOMITING [None]
  - POLLAKIURIA [None]
  - ELECTROCARDIOGRAM ABNORMAL [None]
  - ALANINE AMINOTRANSFERASE INCREASED [None]
  - VISUAL ACUITY REDUCED [None]
  - DIARRHOEA [None]
  - MYALGIA [None]
  - MALAISE [None]
  - NAUSEA [None]
  - ABDOMINAL DISCOMFORT [None]
  - EPISTAXIS [None]
  - URINARY RETENTION [None]
  - OLIGURIA [None]
  - WEIGHT INCREASED [None]
  - MUSCULOSKELETAL STIFFNESS [None]
  - GAMMA-GLUTAMYLTRANSFERASE INCREASED [None]
  - ABDOMINAL PAIN [None]
  - PHOTOPHOBIA [None]
  - FACE OEDEMA [None]
  - BLOOD PRESSURE INCREASED [None]
  - HYPERHIDROSIS [None]
